FAERS Safety Report 5209475-1 (Version None)
Quarter: 2007Q1

REPORT INFORMATION
  Report Type: 
  Country: None (occurrence: None)
  Receive Date: 20070111
  Receipt Date: 20061228
  Transmission Date: 20070707
  Serious: Yes (Hospitalization)
  Sender: FDA-Public Use
  Company Number: MEDI-0004889

PATIENT
  Age: 5 Month

DRUGS (4)
  1. SYNAGIS [Suspect]
     Indication: ANTIVIRAL PROPHYLAXIS
     Dosage: 70 MG, INTRAMUSCULAR ; INTRAMUSCULAR ; 45 MG INTRAMUSCULAR ; 60 MG INTRAMUSCULAR
     Route: 030
     Dates: start: 20051212, end: 20060315
  2. SYNAGIS [Suspect]
     Indication: ANTIVIRAL PROPHYLAXIS
     Dosage: 70 MG, INTRAMUSCULAR ; INTRAMUSCULAR ; 45 MG INTRAMUSCULAR ; 60 MG INTRAMUSCULAR
     Route: 030
     Dates: start: 20051212
  3. SYNAGIS [Suspect]
     Indication: ANTIVIRAL PROPHYLAXIS
     Dosage: 70 MG, INTRAMUSCULAR ; INTRAMUSCULAR ; 45 MG INTRAMUSCULAR ; 60 MG INTRAMUSCULAR
     Route: 030
     Dates: start: 20060112
  4. SYNAGIS [Suspect]
     Indication: ANTIVIRAL PROPHYLAXIS
     Dosage: 70 MG, INTRAMUSCULAR ; INTRAMUSCULAR ; 45 MG INTRAMUSCULAR ; 60 MG INTRAMUSCULAR
     Route: 030
     Dates: start: 20060213

REACTIONS (4)
  - INGUINAL HERNIA [None]
  - RESPIRATORY DISORDER [None]
  - RESPIRATORY TRACT INFECTION [None]
  - URINARY TRACT INFECTION [None]
